FAERS Safety Report 4495889-4 (Version None)
Quarter: 2004Q4

REPORT INFORMATION
  Report Type: 
  Country: None (occurrence: None)
  Receive Date: 20041104
  Receipt Date: 20041021
  Transmission Date: 20050328
  Serious: No
  Sender: FDA-Public Use
  Company Number: 2004UW15684

PATIENT
  Age: 30 Month
  Sex: Male

DRUGS (6)
  1. PULMICORT RESPULES [Suspect]
     Indication: ASTHMA
  2. XOPENEX [Concomitant]
  3. ZANTAC [Concomitant]
  4. REGLAN [Concomitant]
  5. NASACORT AQ [Concomitant]
  6. UNSPECIFIED ALLERGY MEDICATION [Concomitant]

REACTIONS (1)
  - BONE MARROW DEPRESSION [None]
